FAERS Safety Report 5682001-9 (Version None)
Quarter: 2008Q1

REPORT INFORMATION
  Report Type: 
  Country: None (occurrence: None)
  Receive Date: 20080327
  Receipt Date: 20070913
  Transmission Date: 20080703
  Serious: Yes (Other)
  Sender: FDA-Public Use
  Company Number: US-BAYER-US-2007-011937

PATIENT
  Age: 49 Year
  Sex: Female
  Weight: 69 kg

DRUGS (1)
  1. MIRENA [Suspect]
     Indication: CONTRACEPTION
     Route: 015
     Dates: start: 20060501, end: 20070301

REACTIONS (10)
  - AMENORRHOEA [None]
  - ARTHRITIS [None]
  - BACK PAIN [None]
  - DEPRESSION [None]
  - IUD MIGRATION [None]
  - LIBIDO DECREASED [None]
  - MIGRAINE [None]
  - PROCEDURAL PAIN [None]
  - VISION BLURRED [None]
  - WEIGHT INCREASED [None]
